FAERS Safety Report 13244396 (Version 2)
Quarter: 2017Q1

REPORT INFORMATION
  Report Type: Report from Study
  Country: US (occurrence: US)
  Receive Date: 20170217
  Receipt Date: 20170220
  Transmission Date: 20170428
  Serious: Yes (Hospitalization, Other)
  Sender: FDA-Public Use
  Company Number: US-BAYER-2016-013926

PATIENT
  Age: 70 Year
  Sex: Female
  Weight: 63.95 kg

DRUGS (10)
  1. ADEMPAS [Suspect]
     Active Substance: RIOCIGUAT
     Indication: PULMONARY ARTERIAL HYPERTENSION
     Dosage: 2 MG, TID
     Route: 048
  2. ADEMPAS [Suspect]
     Active Substance: RIOCIGUAT
     Indication: PULMONARY ARTERIAL HYPERTENSION
     Dosage: 2.5 MG, TID
     Route: 048
  3. VELCADE [Suspect]
     Active Substance: BORTEZOMIB
     Dosage: UNK
  4. ADEMPAS [Suspect]
     Active Substance: RIOCIGUAT
     Indication: PULMONARY ARTERIAL HYPERTENSION
     Dosage: 0.5 MG, TID
     Route: 048
  5. ADEMPAS [Suspect]
     Active Substance: RIOCIGUAT
     Indication: PULMONARY ARTERIAL HYPERTENSION
     Dosage: UNK
     Dates: start: 20160104
  6. ADEMPAS [Suspect]
     Active Substance: RIOCIGUAT
     Indication: PULMONARY ARTERIAL HYPERTENSION
     Dosage: 1.5 MG, TID
     Route: 048
  7. ADEMPAS [Suspect]
     Active Substance: RIOCIGUAT
     Indication: PULMONARY ARTERIAL HYPERTENSION
     Dosage: 2.5 MG, TID
  8. ADEMPAS [Suspect]
     Active Substance: RIOCIGUAT
     Indication: PULMONARY ARTERIAL HYPERTENSION
     Dosage: 2.5 MG, TID
     Route: 048
  9. ADEMPAS [Suspect]
     Active Substance: RIOCIGUAT
     Indication: PULMONARY ARTERIAL HYPERTENSION
     Dosage: 2.5 MG, TID
     Route: 048
  10. OPSUMIT [Concomitant]
     Active Substance: MACITENTAN
     Dosage: UNK

REACTIONS (29)
  - Insomnia [Unknown]
  - Vomiting [Unknown]
  - Dyspnoea [Not Recovered/Not Resolved]
  - Feeling abnormal [Unknown]
  - Rales [Unknown]
  - Fatigue [None]
  - Peripheral swelling [Not Recovered/Not Resolved]
  - Fatigue [Not Recovered/Not Resolved]
  - Skin irritation [Unknown]
  - Oropharyngeal pain [Unknown]
  - Oxygen saturation decreased [Unknown]
  - Asthenia [None]
  - Skin ulcer [Unknown]
  - Asthenia [Unknown]
  - Influenza [None]
  - Dry mouth [Unknown]
  - Cough [Unknown]
  - Photophobia [Unknown]
  - Adverse drug reaction [Unknown]
  - Lymphadenopathy [Unknown]
  - Fatigue [Unknown]
  - Blood pressure diastolic decreased [Unknown]
  - Epistaxis [None]
  - Neoplasm malignant [None]
  - Amyloidosis [None]
  - Constipation [Unknown]
  - Depression [Unknown]
  - Fluid retention [None]
  - Malaise [None]

NARRATIVE: CASE EVENT DATE: 201612
